FAERS Safety Report 14013754 (Version 2)
Quarter: 2020Q2

REPORT INFORMATION
  Report Type: Spontaneous
  Country: US (occurrence: US)
  Receive Date: 20170926
  Receipt Date: 20200623
  Transmission Date: 20200713
  Serious: Yes (Other)
  Sender: FDA-Public Use
  Company Number: US-BRISTOL-MYERS SQUIBB COMPANY-BMS-2017-084710

PATIENT
  Age: 57 Year
  Sex: Female

DRUGS (1)
  1. OPDIVO [Suspect]
     Active Substance: NIVOLUMAB
     Indication: NEUROENDOCRINE TUMOUR
     Route: 042

REACTIONS (2)
  - Pancreatitis [Unknown]
  - Intentional product use issue [Unknown]
